FAERS Safety Report 9308428 (Version 3)
Quarter: 2013Q4

REPORT INFORMATION
  Report Type: Spontaneous
  Country: US (occurrence: US)
  Receive Date: 20130524
  Receipt Date: 20131122
  Transmission Date: 20140711
  Serious: Yes (Death, Hospitalization)
  Sender: FDA-Public Use
  Company Number: US-B.I. PHARMACEUTICALS,INC./RIDGEFIELD-2013-BI-14541BP

PATIENT
  Age: 67 Year
  Sex: Female
  Weight: 75 kg

DRUGS (24)
  1. PRADAXA [Suspect]
     Indication: ATRIAL FIBRILLATION
     Dosage: 300 MG
     Route: 048
     Dates: start: 20110329, end: 20110620
  2. PHENYTOIN SODIUM EXTENDED [Concomitant]
     Indication: CONVULSION
     Dosage: 300 MG
  3. PHENYTOIN SODIUM EXTENDED [Concomitant]
     Dosage: 400 MG
  4. LEVETIRACETAM [Concomitant]
     Indication: CONVULSION
     Dosage: 4000 MG
     Route: 048
  5. DEXLANSOPRAZOLE [Concomitant]
     Dosage: 60 MG
     Route: 048
  6. LORAZEPAM [Concomitant]
     Route: 048
  7. FENTANYL [Concomitant]
     Indication: PAIN
     Route: 062
  8. HYDROMORPHONE HCL [Concomitant]
     Indication: PAIN
     Route: 048
  9. COENZYME Q10 [Concomitant]
     Indication: CARDIAC DISORDER
     Dosage: 400 MG
     Route: 048
  10. DILTIAZEM HCL [Concomitant]
     Dosage: 120 MG
     Route: 048
  11. LIDOCAINE PATCH [Concomitant]
     Route: 062
  12. LEVOTHYROXINE SODIUM [Concomitant]
     Indication: THYROID DISORDER
     Dosage: 175 MCG
     Route: 048
  13. LISINOPRIL [Concomitant]
     Indication: BLOOD PRESSURE ABNORMAL
     Dosage: 40 MG
     Route: 048
  14. ZOLPIDEM TARTRATE [Concomitant]
     Indication: INSOMNIA
     Route: 048
  15. MORPHINE SULFATE [Concomitant]
     Indication: PAIN
     Dosage: 200 MG
     Route: 048
  16. ASPIRIN [Concomitant]
     Dosage: 81 MG
     Route: 048
  17. SKELETAL [Concomitant]
     Indication: ROUTINE HEALTH MAINTENANCE
     Route: 048
  18. MILK THISTLE [Concomitant]
     Indication: LIVER DISORDER
     Dosage: 200 MG
     Route: 048
  19. PROBIOTIC [Concomitant]
     Indication: DYSPEPSIA
     Route: 048
  20. FOCUS ATTENTION [Concomitant]
     Indication: NERVOUS SYSTEM DISORDER
     Route: 048
  21. FV [Concomitant]
     Indication: IMMUNE ENHANCEMENT THERAPY
     Dosage: 1410 MG
     Route: 048
  22. GRAPINE [Concomitant]
     Indication: CAPILLARY DISORDER
     Route: 048
  23. LIMBREL [Concomitant]
     Indication: ARTHRITIS
     Dosage: 1000 MG
     Route: 048
  24. NEO/POLY/HC [Concomitant]
     Indication: TINNITUS

REACTIONS (12)
  - Hypotension [Fatal]
  - Cardiac arrest [Fatal]
  - Brain injury [Fatal]
  - Shock [Fatal]
  - Cerebrovascular accident [Fatal]
  - Atrial fibrillation [Fatal]
  - Acute respiratory failure [Fatal]
  - Fall [Unknown]
  - Traumatic haemothorax [Recovered/Resolved]
  - Fall [Unknown]
  - Cerebral infarction [Unknown]
  - Rib fracture [Unknown]
